FAERS Safety Report 8831372 (Version 1)
Quarter: 2012Q4

REPORT INFORMATION
  Report Type: Report from Study
  Country: JP (occurrence: JP)
  Receive Date: 20121009
  Receipt Date: 20121009
  Transmission Date: 20130627
  Serious: Yes (Other)
  Sender: FDA-Public Use
  Company Number: JP-009507513-1210JPN000064

PATIENT
  Age: 74 Year
  Sex: Male
  Weight: 61 kg

DRUGS (6)
  1. PEGINTRON [Suspect]
     Indication: HEPATITIS C
     Dosage: 1.5 Microgram per kilogram, UNK
     Route: 058
  2. REBETOL [Suspect]
     Indication: HEPATITIS C
     Dosage: 800 mg, UNK
     Route: 048
     Dates: start: 20120713, end: 20120717
  3. TELAVIC [Suspect]
     Indication: HEPATITIS C
     Dosage: 2250 mg, qd
     Route: 048
     Dates: start: 20120713, end: 20120717
  4. ZYLORIC [Concomitant]
     Dosage: 200 mg, UNK
     Route: 048
     Dates: end: 20120717
  5. TAGAMET [Concomitant]
     Dosage: 600 mg, UNK
     Route: 048
     Dates: end: 20120716
  6. NORVASC [Concomitant]
     Dosage: 5 mg, UNK
     Route: 048

REACTIONS (1)
  - Blood creatinine increased [Recovered/Resolved]
